FAERS Safety Report 5621718-9 (Version None)
Quarter: 2008Q1

REPORT INFORMATION
  Report Type: 
  Country: None (occurrence: None)
  Receive Date: 20080211
  Receipt Date: 20080201
  Transmission Date: 20080703
  Serious: Yes (Other)
  Sender: FDA-Public Use
  Company Number: PHBS2008CH01627

PATIENT
  Age: 44 Year
  Sex: Female

DRUGS (1)
  1. RASILEZ [Suspect]
     Indication: HYPERTENSION
     Dosage: 150MG/DAY
     Dates: start: 20071010, end: 20071013

REACTIONS (2)
  - HAEMATOMA [None]
  - PETECHIAE [None]
